FAERS Safety Report 7814777-6 (Version None)
Quarter: 2011Q4

REPORT INFORMATION
  Report Type: 
  Country: None (occurrence: None)
  Receive Date: 20111013
  Receipt Date: 20111013
  Transmission Date: 20120403
  Serious: Yes (Hospitalization)
  Sender: FDA-Public Use
  Company Number: None

PATIENT
  Age: 47 Year
  Sex: Female
  Weight: 86.4 kg

DRUGS (3)
  1. SINGULAIR [Concomitant]
  2. PROVIGIL [Concomitant]
  3. GILENYA [Suspect]
     Indication: MULTIPLE SCLEROSIS
     Dosage: 0.5 MG ONCE DAILY ORAL
     Route: 048
     Dates: start: 20111003, end: 20111012

REACTIONS (2)
  - DYSPNOEA [None]
  - CHEST DISCOMFORT [None]
